FAERS Safety Report 18569705 (Version 1)
Quarter: 2020Q4

REPORT INFORMATION
  Report Type: Spontaneous
  Country: US (occurrence: US)
  Receive Date: 20201202
  Receipt Date: 20201202
  Transmission Date: 20210114
  Serious: No
  Sender: FDA-Public Use
  Company Number: None

PATIENT
  Age: 65 Year
  Sex: Female
  Weight: 90 kg

DRUGS (17)
  1. METRONIDAZOLE. [Concomitant]
     Active Substance: METRONIDAZOLE
  2. ASPIRIN EC ADULT LOW STRENGTH [Concomitant]
  3. HUMALOG [Concomitant]
     Active Substance: INSULIN LISPRO
  4. TRADJENTA [Concomitant]
     Active Substance: LINAGLIPTIN
  5. ISOSORBIDE DINITRATE. [Concomitant]
     Active Substance: ISOSORBIDE DINITRATE
  6. DOXYCYCLINE HYCLATE. [Concomitant]
     Active Substance: DOXYCYCLINE HYCLATE
  7. LISINOPRIL. [Concomitant]
     Active Substance: LISINOPRIL
  8. ASPIRIN EC LOW STRENGTH [Concomitant]
     Active Substance: ASPIRIN
  9. ATORVASTATIN CALCIUM. [Concomitant]
     Active Substance: ATORVASTATIN CALCIUM
  10. ERLOTINIB [Suspect]
     Active Substance: ERLOTINIB
     Indication: BRONCHIAL CARCINOMA
     Route: 048
     Dates: start: 20200923, end: 20201202
  11. ADMELOG [Concomitant]
     Active Substance: INSULIN LISPRO
  12. LANTUS SOLOSTAR [Concomitant]
     Active Substance: INSULIN GLARGINE
  13. CEPHALEXIN. [Concomitant]
     Active Substance: CEPHALEXIN
  14. ALBUTEROL SULFATE HFA [Concomitant]
     Active Substance: ALBUTEROL SULFATE
  15. METOPROLOL TARTRATE. [Concomitant]
     Active Substance: METOPROLOL TARTRATE
  16. METFORMIN HCL [Concomitant]
     Active Substance: METFORMIN HYDROCHLORIDE
  17. ERLOTINIB [Suspect]
     Active Substance: ERLOTINIB
     Indication: LUNG NEOPLASM MALIGNANT
     Route: 048
     Dates: start: 20200923, end: 20201202

REACTIONS (1)
  - Hospice care [None]

NARRATIVE: CASE EVENT DATE: 20201202
